FAERS Safety Report 12464334 (Version 1)
Quarter: 2016Q2

REPORT INFORMATION
  Report Type: Spontaneous
  Country: US (occurrence: US)
  Receive Date: 20160614
  Receipt Date: 20160614
  Transmission Date: 20160815
  Serious: Yes (Death, Hospitalization)
  Sender: FDA-Public Use
  Company Number: US-PFIZER INC-2016219656

PATIENT
  Age: 63 Year
  Sex: Male

DRUGS (1)
  1. SUTENT [Suspect]
     Active Substance: SUNITINIB MALATE
     Indication: RENAL CANCER
     Dosage: 25 MG, CYCLIC (4 WEEKS THEN OFF FOR 2 WEEKS)

REACTIONS (6)
  - Cardiac failure congestive [Fatal]
  - Dyspnoea [Fatal]
  - Diabetes mellitus [Fatal]
  - Disease progression [Fatal]
  - Hypertension [Fatal]
  - Renal cancer [Fatal]
